FAERS Safety Report 21331126 (Version 2)
Quarter: 2022Q3

REPORT INFORMATION
  Report Type: Spontaneous
  Country: US (occurrence: US)
  Receive Date: 20220914
  Receipt Date: 20220922
  Transmission Date: 20221027
  Serious: Yes (Other)
  Sender: FDA-Public Use
  Company Number: US-BRISTOL-MYERS SQUIBB COMPANY-2022-105155

PATIENT
  Age: 75 Year
  Sex: Male
  Weight: 116 kg

DRUGS (3)
  1. REVLIMID [Suspect]
     Active Substance: LENALIDOMIDE
     Indication: Non-Hodgkin^s lymphoma
     Dosage: DOSE : 1;     FREQ : DAILY FOR 21 DAYS
     Route: 048
     Dates: start: 202209
  2. ASPIRIN [Concomitant]
     Active Substance: ASPIRIN
  3. PRADAXA [Concomitant]
     Active Substance: DABIGATRAN ETEXILATE MESYLATE

REACTIONS (3)
  - Abdominal pain upper [Unknown]
  - Haemoptysis [Unknown]
  - Heart rate increased [Unknown]

NARRATIVE: CASE EVENT DATE: 20220901
